FAERS Safety Report 15956869 (Version 4)
Quarter: 2019Q2

REPORT INFORMATION
  Report Type: Spontaneous
  Country: US (occurrence: US)
  Receive Date: 20190213
  Receipt Date: 20190517
  Transmission Date: 20190711
  Serious: No
  Sender: FDA-Public Use
  Company Number: US-009507513-1902USA003291

PATIENT
  Age: 26 Year
  Sex: Female
  Weight: 126.08 kg

DRUGS (1)
  1. NEXPLANON [Suspect]
     Active Substance: ETONOGESTREL
     Dosage: 1 ROD, EVERY THREE YEARS
     Route: 059
     Dates: start: 20151228

REACTIONS (6)
  - Complication associated with device [Not Recovered/Not Resolved]
  - Device deployment issue [Not Recovered/Not Resolved]
  - No adverse event [Unknown]
  - Complication of device removal [Not Recovered/Not Resolved]
  - Device breakage [Not Recovered/Not Resolved]
  - Incorrect product administration duration [Unknown]

NARRATIVE: CASE EVENT DATE: 20151228
